FAERS Safety Report 10265171 (Version 1)
Quarter: 2014Q2

REPORT INFORMATION
  Report Type: Spontaneous
  Country: US (occurrence: None)
  Receive Date: 20140625
  Receipt Date: 20140625
  Transmission Date: 20141212
  Serious: Yes (Hospitalization)
  Sender: FDA-Public Use
  Company Number: None

PATIENT
  Age: 72 Year
  Sex: Female
  Weight: 60.33 kg

DRUGS (2)
  1. CARBOPLATIN [Suspect]
     Dosage: CARBOPLATIN TOTAL MG AMOUNT FROM CYCLE 1 THROUGH CYCLE 4?
  2. PACLITAXEL (TAXOL) [Suspect]
     Dosage: PACLITAXEL CUMULATIVE DOSE FROM C1D1 THROUGH C4D15

REACTIONS (3)
  - Abdominal pain [None]
  - Sepsis [None]
  - Pelvic fluid collection [None]
